FAERS Safety Report 6165812-5 (Version None)
Quarter: 2009Q2

REPORT INFORMATION
  Report Type: 
  Country: None (occurrence: None)
  Receive Date: 20090422
  Receipt Date: 20090415
  Transmission Date: 20091009
  Serious: Yes (Other)
  Sender: FDA-Public Use
  Company Number: GXKR2009GB04667

PATIENT
  Age: 68 Year
  Sex: Female
  Weight: 90 kg

DRUGS (4)
  1. SIMVASTATIN [Suspect]
     Dosage: 10 MG, ORAL
     Route: 048
     Dates: start: 20060301, end: 20080829
  2. ACETYLSALICYLIC ACID (ACETYLSALICYLIC ACID) [Concomitant]
  3. BENDROFLUMETHIAZIDE (BENDROFLUMETHIAZIDE) [Concomitant]
  4. LISINOPRIL [Concomitant]

REACTIONS (2)
  - COUGH [None]
  - TACHYCARDIA [None]
